FAERS Safety Report 14081308 (Version 1)
Quarter: 2017Q4

REPORT INFORMATION
  Report Type: Spontaneous
  Country: US (occurrence: None)
  Receive Date: 20171012
  Receipt Date: 20171012
  Transmission Date: 20180321
  Serious: Yes (Life-Threatening, Hospitalization, Disabling)
  Sender: FDA-Public Use
  Company Number: None

PATIENT
  Age: 66 Year
  Sex: Male
  Weight: 63.96 kg

DRUGS (15)
  1. SANDOSTATIN [Concomitant]
     Active Substance: OCTREOTIDE ACETATE
  2. D2 [Concomitant]
  3. ASPRIN [Concomitant]
     Active Substance: ASPIRIN
  4. VITAMIN D3 [Concomitant]
     Active Substance: CHOLECALCIFEROL
  5. ZEPATIER [Suspect]
     Active Substance: ELBASVIR\GRAZOPREVIR
     Indication: HEPATITIS C
     Dosage: 1 PILL PER DAY   1 PILL 12PM EACH DAY BY MOUTH
     Route: 048
     Dates: start: 20170523, end: 20170808
  6. ZOFRAN [Concomitant]
     Active Substance: ONDANSETRON HYDROCHLORIDE
  7. LOMOTIL [Concomitant]
     Active Substance: ATROPINE SULFATE\DIPHENOXYLATE HYDROCHLORIDE
  8. MULTI VITAMIN [Concomitant]
     Active Substance: VITAMINS
  9. HYDROMORPHONE [Concomitant]
     Active Substance: HYDROMORPHONE
  10. LIDOCANE-MENTHOL PAIN PATCH [Concomitant]
  11. PEPCID [Concomitant]
     Active Substance: FAMOTIDINE
  12. TUMS [Concomitant]
     Active Substance: CALCIUM CARBONATE
  13. VITAMIN B12 [Concomitant]
     Active Substance: CYANOCOBALAMIN
  14. GAS-X [Concomitant]
     Active Substance: DIMETHICONE
  15. LIDOCAINE. [Concomitant]
     Active Substance: LIDOCAINE

REACTIONS (10)
  - Back pain [None]
  - Musculoskeletal pain [None]
  - Metastases to lymph nodes [None]
  - Metastases to lung [None]
  - Asthenia [None]
  - Bone swelling [None]
  - Parosmia [None]
  - Agitation [None]
  - Neck pain [None]
  - Metastases to liver [None]

NARRATIVE: CASE EVENT DATE: 20170530
